FAERS Safety Report 7164257-9 (Version None)
Quarter: 2010Q4

REPORT INFORMATION
  Report Type: 
  Country: None (occurrence: None)
  Receive Date: 20101215
  Receipt Date: 20101214
  Transmission Date: 20110411
  Serious: Yes (Life-Threatening, Hospitalization)
  Sender: FDA-Public Use
  Company Number: MX-BRISTOL-MYERS SQUIBB COMPANY-15338064

PATIENT
  Age: 67 Year
  Sex: Female

DRUGS (4)
  1. IXABEPILONE [Suspect]
     Indication: ENDOMETRIAL CANCER
     Dosage: 1DF=78.4 UNIT NOT SPECIFIED.NO OF COURSES:1
     Route: 042
     Dates: start: 20101011, end: 20101011
  2. METOPROLOL [Concomitant]
     Dates: start: 19800101
  3. NIFEDIPINE [Concomitant]
     Dates: start: 19800101
  4. TRADOL [Concomitant]
     Dates: start: 20100915, end: 20101013

REACTIONS (13)
  - ATRIAL FIBRILLATION [None]
  - BLOOD DISORDER [None]
  - DIARRHOEA [None]
  - HAEMOGLOBIN DECREASED [None]
  - HYPOTENSION [None]
  - NEUTROPENIA [None]
  - NEUTROPHIL COUNT DECREASED [None]
  - PLEURAL EFFUSION [None]
  - PULMONARY EMBOLISM [None]
  - RIGHT VENTRICULAR FAILURE [None]
  - THROMBOCYTOPENIA [None]
  - VENTRICULAR FIBRILLATION [None]
  - WHITE BLOOD CELL COUNT DECREASED [None]
